FAERS Safety Report 6475844-5 (Version None)
Quarter: 2009Q4

REPORT INFORMATION
  Report Type: 
  Country: None (occurrence: None)
  Receive Date: 20091204
  Receipt Date: 20091204
  Transmission Date: 20100525
  Serious: No
  Sender: FDA-Public Use
  Company Number: US-ROXANE LABORATORIES, INC.-2009-RO-01218RO

PATIENT
  Age: 19 Year
  Sex: Female

DRUGS (3)
  1. LITHIUM CARBONATE [Suspect]
     Indication: SCHIZOAFFECTIVE DISORDER BIPOLAR TYPE
     Dosage: 900 MG
     Dates: start: 20080301, end: 20091101
  2. LITHIUM CARBONATE [Suspect]
     Dosage: 600 MG
     Dates: start: 20091101
  3. SEROQUEL [Concomitant]

REACTIONS (4)
  - DEMENTIA [None]
  - DYSKINESIA [None]
  - MUSCLE TWITCHING [None]
  - PSYCHOMOTOR HYPERACTIVITY [None]
